FAERS Safety Report 4413504-2 (Version None)
Quarter: 2004Q3

REPORT INFORMATION
  Report Type: 
  Country: None (occurrence: None)
  Receive Date: 20040728
  Receipt Date: 20040708
  Transmission Date: 20050211
  Serious: No
  Sender: FDA-Public Use
  Company Number: USA040259973

PATIENT
  Age: 79 Year
  Sex: Female

DRUGS (2)
  1. FORTEO [Suspect]
     Indication: OSTEOPOROSIS
     Dosage: 20 UG DAY
     Dates: start: 20031124
  2. AMARYL [Concomitant]

REACTIONS (3)
  - INFUSION SITE PAIN [None]
  - INJECTION SITE ERYTHEMA [None]
  - PHARMACEUTICAL PRODUCT COMPLAINT [None]
